FAERS Safety Report 8876906 (Version 1)
Quarter: 2012Q4

REPORT INFORMATION
  Report Type: Spontaneous
  Country: US (occurrence: None)
  Receive Date: 20121024
  Receipt Date: 20121024
  Transmission Date: 20130627
  Serious: Yes (Hospitalization)
  Sender: FDA-Public Use
  Company Number: IMP_06038_2012

PATIENT
  Age: 37 Year
  Sex: Male

DRUGS (8)
  1. OXYMORPHONE [Suspect]
     Indication: PRODUCT USED FOR UNKNOWN INDICATION
     Route: 045
  2. ALCOHOL [Suspect]
     Indication: PRODUCT USED FOR UNKNOWN INDICATION
  3. NICOTINE [Suspect]
     Indication: PRODUCT USED FOR UNKNOWN INDICATION
  4. DIPHENHYDRAMINE [Suspect]
  5. IBUPROFEN [Suspect]
  6. CITALOPRAM [Suspect]
     Indication: PRODUCT USED FOR UNKNOWN INDICATION
  7. PERCOCET-5 [Suspect]
  8. OXCARBAZEPINE [Suspect]

REACTIONS (8)
  - Intentional drug misuse [None]
  - Miosis [None]
  - Snoring [None]
  - Mental status changes [None]
  - Hypopnoea [None]
  - Deafness neurosensory [None]
  - Drug level increased [None]
  - Self-medication [None]
